FAERS Safety Report 8986410 (Version 1)
Quarter: 2012Q4

REPORT INFORMATION
  Report Type: Report from Study
  Country: DE (occurrence: DE)
  Receive Date: 20121226
  Receipt Date: 20121226
  Transmission Date: 20130627
  Serious: Yes (Death, Hospitalization)
  Sender: FDA-Public Use
  Company Number: DE-ROCHE-1082970

PATIENT
  Age: 48 Year
  Sex: Male
  Weight: 77 kg

DRUGS (3)
  1. BEVACIZUMAB [Suspect]
     Indication: BRONCHIAL CARCINOMA
     Route: 042
     Dates: start: 20120117, end: 20120430
  2. GEMCITABINE [Concomitant]
     Indication: BRONCHIAL CARCINOMA
     Route: 042
     Dates: start: 20120117, end: 20120507
  3. CARBOPLATIN [Concomitant]
     Indication: BRONCHIAL CARCINOMA
     Route: 042
     Dates: start: 20120117, end: 20120430

REACTIONS (4)
  - Neoplasm malignant [Fatal]
  - Dyspnoea [Not Recovered/Not Resolved]
  - Cough [Not Recovered/Not Resolved]
  - Pneumonia fungal [Recovered/Resolved]
